FAERS Safety Report 8019811-9 (Version None)
Quarter: 2012Q1

REPORT INFORMATION
  Report Type: 
  Country: None (occurrence: None)
  Receive Date: 20120103
  Receipt Date: 20120102
  Transmission Date: 20120608
  Serious: Yes (Other)
  Sender: FDA-Public Use
  Company Number: US-PFIZER INC-2012000408

PATIENT
  Sex: Female
  Weight: 84.354 kg

DRUGS (3)
  1. CHANTIX [Suspect]
     Indication: SMOKING CESSATION THERAPY
     Dosage: 0.5 MG, DAILY
     Dates: start: 20111225, end: 20111201
  2. CHANTIX [Suspect]
     Dosage: 1 MG, 2X/DAY
  3. CHANTIX [Suspect]
     Dosage: 0.5 MG, 2X/DAY
     Dates: start: 20111201, end: 20111201

REACTIONS (9)
  - IRRITABILITY [None]
  - FRUSTRATION [None]
  - ACNE [None]
  - EMOTIONAL DISORDER [None]
  - CRYING [None]
  - APHTHOUS STOMATITIS [None]
  - ANGER [None]
  - SCREAMING [None]
  - FEELING GUILTY [None]
